FAERS Safety Report 22943775 (Version 5)
Quarter: 2024Q1

REPORT INFORMATION
  Report Type: Spontaneous
  Country: KR (occurrence: KR)
  Receive Date: 20230914
  Receipt Date: 20240103
  Transmission Date: 20240410
  Serious: No
  Sender: FDA-Public Use
  Company Number: KR-PFIZER INC-PV202300142297

PATIENT
  Age: 8 Year
  Sex: Female

DRUGS (2)
  1. GENOTROPIN [Suspect]
     Active Substance: SOMATROPIN
     Indication: Short stature
     Dosage: 6 TIMES PER WEEK
     Dates: start: 20220209
  2. GENOTROPIN [Suspect]
     Active Substance: SOMATROPIN
     Dosage: 6 TIMES PER WEEK

REACTIONS (2)
  - Poor quality device used [Unknown]
  - Device delivery system issue [Unknown]
